FAERS Safety Report 8358336-8 (Version None)
Quarter: 2012Q2

REPORT INFORMATION
  Report Type: 
  Country: None (occurrence: None)
  Receive Date: 20120514
  Receipt Date: 20110426
  Transmission Date: 20120825
  Serious: No
  Sender: FDA-Public Use
  Company Number: US-ALEXION-A201100613

PATIENT
  Sex: Female

DRUGS (7)
  1. ONE A DAY [Concomitant]
     Dosage: UNK
  2. SOLIRIS [Suspect]
     Indication: PAROXYSMAL NOCTURNAL HAEMOGLOBINURIA
     Dosage: 900 MG Q2W
     Route: 042
     Dates: start: 20040101
  3. EXJADE [Concomitant]
     Dosage: UNK
  4. ASCORBIC ACID [Concomitant]
     Dosage: UNK
  5. FOLIC ACID [Concomitant]
     Dosage: UNK
  6. CALCIUM [Concomitant]
     Dosage: UNK
  7. VITAMIN E [Concomitant]

REACTIONS (4)
  - ABDOMINAL DISCOMFORT [None]
  - BLOOD PRODUCT TRANSFUSION DEPENDENT [None]
  - FATIGUE [None]
  - CHROMATURIA [None]
